FAERS Safety Report 4987964-2 (Version None)
Quarter: 2006Q2

REPORT INFORMATION
  Report Type: 
  Country: None (occurrence: None)
  Receive Date: 20060424
  Receipt Date: 20060403
  Transmission Date: 20061013
  Serious: Yes (Hospitalization)
  Sender: FDA-Public Use
  Company Number: 13336623

PATIENT
  Sex: Female

DRUGS (1)
  1. REVIA [Suspect]
     Route: 048

REACTIONS (2)
  - INTESTINAL ISCHAEMIA [None]
  - VASCULITIS GASTROINTESTINAL [None]
